FAERS Safety Report 5278292-9 (Version None)
Quarter: 2007Q1

REPORT INFORMATION
  Report Type: 
  Country: None (occurrence: None)
  Receive Date: 20070322
  Receipt Date: 20070314
  Transmission Date: 20070707
  Serious: Yes (Hospitalization)
  Sender: FDA-Public Use
  Company Number: E2020-01030-SPO-JP

PATIENT
  Age: 76 Year
  Sex: Male
  Weight: 51 kg

DRUGS (12)
  1. ARICEPT [Suspect]
     Indication: DEMENTIA ALZHEIMER'S TYPE
     Dosage: SEE IMAGE
     Route: 048
     Dates: start: 20070130, end: 20070212
  2. ARICEPT [Suspect]
     Indication: DEMENTIA ALZHEIMER'S TYPE
     Dosage: SEE IMAGE
     Route: 048
     Dates: start: 20070213, end: 20070220
  3. RIMATIL (BUCILLAMINE) [Concomitant]
  4. RISEDRONATE SODIUM [Concomitant]
  5. PREDNISOLONE [Concomitant]
  6. ASPIRIN [Concomitant]
  7. BLOPRESS (CANDESARTAN CILEXETIL) [Concomitant]
  8. TICLOPIDINE HCL [Concomitant]
  9. NITRODERM [Concomitant]
  10. GLYBURIDE [Concomitant]
  11. SIGMART (NICORANDIL) [Concomitant]
  12. MAGNESIUM OXIDE (MAGNESIUM OXIDE) [Concomitant]

REACTIONS (3)
  - INFECTION [None]
  - PNEUMONIA [None]
  - RHABDOMYOLYSIS [None]
